FAERS Safety Report 4942579-7 (Version None)
Quarter: 2006Q1

REPORT INFORMATION
  Report Type: 
  Country: None (occurrence: None)
  Receive Date: 20060308
  Receipt Date: 20060222
  Transmission Date: 20060701
  Serious: Yes (Other)
  Sender: FDA-Public Use
  Company Number: US-2005-019355

PATIENT
  Age: 20 Year
  Sex: Female

DRUGS (1)
  1. BETASERON [Suspect]
     Indication: RELAPSING-REMITTING MULTIPLE SCLEROSIS
     Dosage: 4 MIU, 1X/WEEK, SUBCUTANEOUS
     Route: 058
     Dates: start: 20050511, end: 20051125

REACTIONS (2)
  - DIABETES MELLITUS [None]
  - HEPATITIS [None]
